FAERS Safety Report 7815489-5 (Version None)
Quarter: 2011Q4

REPORT INFORMATION
  Report Type: 
  Country: None (occurrence: None)
  Receive Date: 20111014
  Receipt Date: 20111011
  Transmission Date: 20120403
  Serious: Yes (Death)
  Sender: FDA-Public Use
  Company Number: PHHY2011CA02679

PATIENT
  Sex: Female

DRUGS (1)
  1. ZOLEDRONOC ACID [Suspect]
     Indication: OSTEOPOROSIS
     Dosage: 5 MG, UNK
     Route: 042
     Dates: start: 20081210

REACTIONS (4)
  - PAIN IN EXTREMITY [None]
  - METASTATIC NEOPLASM [None]
  - HYPOAESTHESIA [None]
  - MUSCULOSKELETAL PAIN [None]
